FAERS Safety Report 5376518-4 (Version None)
Quarter: 2007Q3

REPORT INFORMATION
  Report Type: 
  Country: None (occurrence: None)
  Receive Date: 20070702
  Receipt Date: 20070618
  Transmission Date: 20080115
  Serious: Yes (Hospitalization)
  Sender: FDA-Public Use
  Company Number: US-SHR-US-2007-020128

PATIENT
  Age: 55 Year
  Sex: Female

DRUGS (2)
  1. BETASERON [Suspect]
     Dosage: 8 MIU, EVERY 2D
     Route: 058
     Dates: start: 20070226
  2. ANTIBIOTICS [Suspect]
     Indication: BRAIN ABSCESS
     Dosage: UNK, UNK
     Route: 042

REACTIONS (3)
  - ASTHENIA [None]
  - BRAIN ABSCESS [None]
  - MULTIPLE SCLEROSIS [None]
